FAERS Safety Report 14046223 (Version 1)
Quarter: 2017Q4

REPORT INFORMATION
  Report Type: Spontaneous
  Country: US (occurrence: US)
  Receive Date: 20171005
  Receipt Date: 20171005
  Transmission Date: 20180321
  Serious: Yes (Death, Other)
  Sender: FDA-Public Use
  Company Number: US-INDIVIOR LIMITED-INDV-098872-2017

PATIENT
  Age: 20 Year
  Sex: Male

DRUGS (2)
  1. SUBOXONE [Suspect]
     Active Substance: BUPRENORPHINE HYDROCHLORIDE\NALOXONE HYDROCHLORIDE
     Indication: DRUG USE DISORDER
     Dosage: 2MG A DAY
     Route: 065
     Dates: start: 201202, end: 20131227
  2. HEROIN [Suspect]
     Active Substance: DIAMORPHINE
     Indication: DRUG WITHDRAWAL SYNDROME
     Dosage: UNK
     Route: 065
     Dates: end: 2014

REACTIONS (5)
  - Therapy cessation [Recovered/Resolved]
  - Toxicity to various agents [Fatal]
  - Drug dependence [Unknown]
  - Overdose [Fatal]
  - Drug withdrawal syndrome [Unknown]

NARRATIVE: CASE EVENT DATE: 2013
